FAERS Safety Report 7942680-X (Version None)
Quarter: 2011Q4

REPORT INFORMATION
  Report Type: 
  Country: None (occurrence: None)
  Receive Date: 20111128
  Receipt Date: 20111123
  Transmission Date: 20120403
  Serious: Yes (Death)
  Sender: FDA-Public Use
  Company Number: DE-B.I. PHARMACEUTICALS,INC./RIDGEFIELD-2011-DE-05810DE

PATIENT
  Sex: Male
  Weight: 80 kg

DRUGS (15)
  1. ALLOPURINOL [Concomitant]
     Dosage: 300 NR
  2. RAMIPRIL 5 [Concomitant]
     Dosage: 5 MG
  3. PRAVASTATIN SODIUM [Concomitant]
     Dosage: 20 MG
  4. TILIDIN 50/4 [Concomitant]
     Dosage: 50/4MG
     Dates: start: 20110921
  5. ALENDRONAT 70 [Concomitant]
     Dosage: 1X WEEKLY
  6. BISOPROLOL FUMARATE [Concomitant]
     Dosage: 10 MG
  7. VITAMIN D [Concomitant]
  8. CALCICARE D3 [Concomitant]
  9. PRADAXA [Suspect]
     Indication: ATRIAL FIBRILLATION
     Dosage: 300 MG
     Dates: start: 20110916, end: 20111012
  10. BETA-ACETYL-DIGOXIN 0,2 [Concomitant]
     Dosage: 1 ANZ
  11. TORASEMID 10 [Concomitant]
     Dosage: 10 NR
  12. NOVODIGAL [Concomitant]
     Dosage: 0.2 MG
  13. RAMIPRIL PLUS 5/25 [Concomitant]
     Dosage: 5/25MG
  14. CA2 [Concomitant]
  15. L-THYROXIN 50 [Concomitant]
     Dosage: 50 MCG
     Dates: start: 20110921

REACTIONS (8)
  - GASTRIC HAEMORRHAGE [None]
  - FALL [None]
  - SKIN HAEMORRHAGE [None]
  - DEATH [None]
  - INTESTINAL HAEMORRHAGE [None]
  - HAEMATOMA [None]
  - HAEMATEMESIS [None]
  - MELAENA [None]
